FAERS Safety Report 15150119 (Version 1)
Quarter: 2018Q3

REPORT INFORMATION
  Report Type: Spontaneous
  Country: PL (occurrence: PL)
  Receive Date: 20180716
  Receipt Date: 20180716
  Transmission Date: 20181010
  Serious: Yes (Life-Threatening)
  Sender: FDA-Public Use
  Company Number: PL-FRESENIUS KABI-FK201807734

PATIENT
  Age: 60 Year
  Sex: Female
  Weight: 61 kg

DRUGS (1)
  1. PACLITAXEL (MANUFACTURER UNKNOWN) [Suspect]
     Active Substance: PACLITAXEL
     Indication: UTERINE CANCER
     Route: 041
     Dates: start: 20130823, end: 20130823

REACTIONS (7)
  - Mydriasis [Recovered/Resolved]
  - Loss of consciousness [Recovered/Resolved]
  - Rales [Recovered/Resolved]
  - Injection site hypoaesthesia [Recovered/Resolved]
  - Fall [Recovered/Resolved]
  - Pulse absent [Recovered/Resolved]
  - Hypoaesthesia [Recovered/Resolved]

NARRATIVE: CASE EVENT DATE: 20130823
